FAERS Safety Report 23963934 (Version 1)
Quarter: 2024Q2

REPORT INFORMATION
  Report Type: Report from Study
  Country: US (occurrence: None)
  Receive Date: 20240611
  Receipt Date: 20240611
  Transmission Date: 20240716
  Serious: Yes (Hospitalization)
  Sender: FDA-Public Use
  Company Number: 2019SF47678

PATIENT
  Sex: Female
  Weight: 93 kg

DRUGS (2)
  1. TAGRISSO [Suspect]
     Active Substance: OSIMERTINIB
     Indication: Lung cancer metastatic
     Route: 048
     Dates: start: 201901
  2. TAGRISSO [Suspect]
     Active Substance: OSIMERTINIB
     Indication: Lung cancer metastatic
     Route: 048

REACTIONS (4)
  - Illness [Recovered/Resolved]
  - Feeding disorder [Recovered/Resolved]
  - Fatigue [Recovered/Resolved]
  - Product dose omission issue [Not Recovered/Not Resolved]
